FAERS Safety Report 4669172-8 (Version None)
Quarter: 2005Q2

REPORT INFORMATION
  Report Type: 
  Country: None (occurrence: None)
  Receive Date: 20050519
  Receipt Date: 20050504
  Transmission Date: 20051028
  Serious: Yes (Death)
  Sender: FDA-Public Use
  Company Number: 11019

PATIENT
  Age: 76 Year
  Sex: Male

DRUGS (10)
  1. FLUCONAZOLE [Suspect]
     Dosage: 150 MG;
  2. ATORVASTATIN CALCIUM [Suspect]
     Dosage: 40 MG;
  3. BISOPROLOL FUMARATE [Concomitant]
  4. DIGOXIN [Concomitant]
  5. WARFARIN [Concomitant]
  6. DOXYCYCLINE [Concomitant]
  7. FUSIDIC ACID [Concomitant]
  8. PREDNISOLONE [Concomitant]
  9. ESOMEPRAZOLE [Concomitant]
  10. PRAVASTATIN [Concomitant]

REACTIONS (8)
  - CARDIOMEGALY [None]
  - DRUG INTERACTION [None]
  - GENERAL PHYSICAL HEALTH DETERIORATION [None]
  - HAEMODIALYSIS [None]
  - MULTI-ORGAN FAILURE [None]
  - PULMONARY CONGESTION [None]
  - RENAL FAILURE [None]
  - RHABDOMYOLYSIS [None]
